FAERS Safety Report 16860678 (Version 1)
Quarter: 2019Q3

REPORT INFORMATION
  Report Type: Spontaneous
  Country: LB (occurrence: LB)
  Receive Date: 20190927
  Receipt Date: 20190927
  Transmission Date: 20191005
  Serious: Yes (Hospitalization)
  Sender: FDA-Public Use
  Company Number: LB-FRESENIUS KABI-FK201910640

PATIENT
  Age: 84 Year
  Sex: Male

DRUGS (4)
  1. MIDAZOLAM [Suspect]
     Active Substance: MIDAZOLAM HYDROCHLORIDE
     Indication: ANAESTHESIA
     Route: 065
  2. FENTANYL. [Suspect]
     Active Substance: FENTANYL
     Indication: ANAESTHESIA
     Route: 065
  3. PROPOFOL (MANUFACTURER UNKNOWN) [Suspect]
     Active Substance: PROPOFOL
     Indication: ANAESTHESIA
     Route: 065
  4. ROPIVACAINE. [Suspect]
     Active Substance: ROPIVACAINE HYDROCHLORIDE
     Indication: ANAESTHESIA
     Route: 065

REACTIONS (4)
  - Hypotension [Recovered/Resolved]
  - Somnolence [Recovered/Resolved]
  - Supraventricular tachycardia [Recovered/Resolved]
  - Respiratory arrest [Recovered/Resolved]
